FAERS Safety Report 15473727 (Version 1)
Quarter: 2018Q4

REPORT INFORMATION
  Report Type: Spontaneous
  Country: US (occurrence: US)
  Receive Date: 20181008
  Receipt Date: 20181008
  Transmission Date: 20190205
  Serious: No
  Sender: FDA-Public Use
  Company Number: US-GLAXOSMITHKLINE-US2018178749

PATIENT
  Age: 72 Year
  Sex: Female

DRUGS (2)
  1. NICODERM CQ [Suspect]
     Active Substance: NICOTINE
     Dosage: UNK
  2. NICODERM CQ [Suspect]
     Active Substance: NICOTINE
     Indication: SMOKING CESSATION THERAPY
     Dosage: 21 MG, UNK
     Dates: end: 20180924

REACTIONS (7)
  - Application site rash [Unknown]
  - Application site erythema [Not Recovered/Not Resolved]
  - Application site exfoliation [Unknown]
  - Application site papules [Unknown]
  - Application site pruritus [Recovering/Resolving]
  - Application site pain [Unknown]
  - Drug ineffective [Unknown]
